FAERS Safety Report 12048510 (Version 1)
Quarter: 2016Q1

REPORT INFORMATION
  Report Type: Spontaneous
  Country: GB (occurrence: GB)
  Receive Date: 20160208
  Receipt Date: 20160208
  Transmission Date: 20160526
  Serious: Yes (Disabling, Other)
  Sender: FDA-Public Use
  Company Number: GB-TEVA-630423ACC

PATIENT
  Age: 51 Year
  Sex: Male
  Weight: 107 kg

DRUGS (3)
  1. CELIPROLOL [Concomitant]
     Active Substance: CELIPROLOL
     Dosage: 400 MILLIGRAM DAILY;
  2. ATORVASTATIN [Suspect]
     Active Substance: ATORVASTATIN
     Indication: BLOOD CHOLESTEROL INCREASED
     Dosage: 20 MILLIGRAM DAILY;
     Route: 048
     Dates: start: 20151104, end: 20160113
  3. METFORMIN [Concomitant]
     Active Substance: METFORMIN HYDROCHLORIDE
     Dosage: 1-2 X 500MG MODIFIED RELEASE TABLETS PER DAY

REACTIONS (9)
  - Rash erythematous [Not Recovered/Not Resolved]
  - Dyspnoea [Recovering/Resolving]
  - Mental impairment [Not Recovered/Not Resolved]
  - Cardiac discomfort [Recovering/Resolving]
  - Blood corticosterone decreased [Recovering/Resolving]
  - Arthralgia [Recovering/Resolving]
  - Limb discomfort [Recovering/Resolving]
  - Muscle fatigue [Recovering/Resolving]
  - Agitated depression [Not Recovered/Not Resolved]

NARRATIVE: CASE EVENT DATE: 20151111
